FAERS Safety Report 7767916-X (Version None)
Quarter: 2011Q3

REPORT INFORMATION
  Report Type: 
  Country: None (occurrence: None)
  Receive Date: 20110922
  Receipt Date: 20110217
  Transmission Date: 20111222
  Serious: No
  Sender: FDA-Public Use
  Company Number: US-ASTRAZENECA-2011SE00636

PATIENT
  Age: 55 Year
  Sex: Male
  Weight: 110.7 kg

DRUGS (12)
  1. SEROQUEL [Suspect]
     Indication: SLEEP DISORDER
     Route: 048
     Dates: start: 20080101
  2. CALCIUM GLUCONATE [Concomitant]
  3. ANDROGEL [Concomitant]
  4. BENADRYL [Concomitant]
  5. SEROQUEL [Suspect]
     Route: 048
     Dates: start: 20080101
  6. MELATONIN [Concomitant]
     Indication: SLEEP DISORDER
  7. METHADONE HCL [Concomitant]
  8. REMERON [Concomitant]
  9. PERCOCET [Concomitant]
  10. SEROQUEL [Suspect]
     Indication: DEPRESSION
     Route: 048
     Dates: start: 20080101
  11. SEROQUEL [Suspect]
     Route: 048
     Dates: start: 20080101
  12. XANAX [Concomitant]

REACTIONS (6)
  - HEPATITIS C [None]
  - VOMITING [None]
  - WRONG TECHNIQUE IN DRUG USAGE PROCESS [None]
  - WEIGHT INCREASED [None]
  - DRUG DOSE OMISSION [None]
  - INCREASED APPETITE [None]
